FAERS Safety Report 6119548-7 (Version None)
Quarter: 2009Q1

REPORT INFORMATION
  Report Type: 
  Country: None (occurrence: None)
  Receive Date: 20090316
  Receipt Date: 20090309
  Transmission Date: 20090719
  Serious: Yes (Hospitalization)
  Sender: FDA-Public Use
  Company Number: B0555596A

PATIENT
  Sex: Female

DRUGS (3)
  1. SERETIDE [Suspect]
     Indication: COUGH
     Route: 055
     Dates: start: 20090102, end: 20090109
  2. MYOCRISIN [Concomitant]
     Indication: RHEUMATIC FEVER
  3. LIVIAL [Concomitant]

REACTIONS (9)
  - CARDIAC ARREST [None]
  - CIRCULATORY COLLAPSE [None]
  - DRY MOUTH [None]
  - DYSPNOEA [None]
  - MOUTH ULCERATION [None]
  - PULMONARY OEDEMA [None]
  - RASH [None]
  - SWELLING [None]
  - THYROID DISORDER [None]
